FAERS Safety Report 18565594 (Version 1)
Quarter: 2020Q4

REPORT INFORMATION
  Report Type: Spontaneous
  Country: DE (occurrence: DE)
  Receive Date: 20201201
  Receipt Date: 20201201
  Transmission Date: 20210114
  Serious: Yes (Other)
  Sender: FDA-Public Use
  Company Number: NVSC2020DE318482

PATIENT
  Sex: Male

DRUGS (1)
  1. OLMESARTAN ? 1 A PHARMA 20 MG FILMTABLETTEN [Suspect]
     Active Substance: OLMESARTAN MEDOXOMIL
     Indication: HYPERTENSION
     Dosage: 20 MG (STARTED THERAPY ABOUT 3 YEARS AGO)
     Route: 065

REACTIONS (3)
  - Syncope [Unknown]
  - Dizziness [Unknown]
  - Drug intolerance [Unknown]
